FAERS Safety Report 11413479 (Version 1)
Quarter: 2015Q3

REPORT INFORMATION
  Report Type: Spontaneous
  Country: US (occurrence: US)
  Receive Date: 20150821
  Receipt Date: 20150821
  Transmission Date: 20151125
  Serious: No
  Sender: FDA-Public Use
  Company Number: US-ELI_LILLY_AND_COMPANY-US201106000455

PATIENT
  Sex: Male

DRUGS (4)
  1. HUMULIN 70/30 [Suspect]
     Active Substance: INSULIN HUMAN
     Dosage: 150 U, BID
     Dates: start: 2003
  2. NOVOLIN [Concomitant]
     Active Substance: INSULIN HUMAN
  3. NOVOLOG [Concomitant]
     Active Substance: INSULIN ASPART
  4. HUMULIN 70/30 [Suspect]
     Active Substance: INSULIN HUMAN
     Indication: DIABETES MELLITUS
     Dosage: 150 U, BID
     Dates: start: 2003

REACTIONS (1)
  - Arthritis [Unknown]
